FAERS Safety Report 14183170 (Version 1)
Quarter: 2017Q4

REPORT INFORMATION
  Report Type: Spontaneous
  Country: US (occurrence: US)
  Receive Date: 20171113
  Receipt Date: 20171113
  Transmission Date: 20180321
  Serious: No
  Sender: FDA-Public Use
  Company Number: US-HORIZON-DUE-0203-2017

PATIENT
  Age: 39 Year
  Sex: Female

DRUGS (1)
  1. DUEXIS [Suspect]
     Active Substance: FAMOTIDINE\IBUPROFEN
     Indication: NEURALGIA
     Dosage: PRESCRIBED TO TAKE 2-3 PILLS DAILY, PATIENT HAS ONLY BEEN TAKING 2 TABLETS

REACTIONS (2)
  - Pain [Unknown]
  - Off label use [Unknown]
